FAERS Safety Report 9102497 (Version 2)
Quarter: 2013Q1

REPORT INFORMATION
  Report Type: Report from Study
  Country: AU (occurrence: AU)
  Receive Date: 20130218
  Receipt Date: 20130228
  Transmission Date: 20140127
  Serious: Yes (Other)
  Sender: FDA-Public Use
  Company Number: AU-ROCHE-1192067

PATIENT
  Sex: Male

DRUGS (1)
  1. ACTEMRA [Suspect]
     Indication: RHEUMATOID ARTHRITIS
     Route: 042
     Dates: start: 20111007

REACTIONS (4)
  - Malaise [Not Recovered/Not Resolved]
  - Respiratory disorder [Unknown]
  - Rheumatoid arthritis [Unknown]
  - Influenza [Unknown]
